FAERS Safety Report 6149841-3 (Version None)
Quarter: 2009Q2

REPORT INFORMATION
  Report Type: 
  Country: None (occurrence: None)
  Receive Date: 20090409
  Receipt Date: 20090402
  Transmission Date: 20091009
  Serious: Yes (Hospitalization, Other)
  Sender: FDA-Public Use
  Company Number: US-ASTRAZENECA-2009UW08370

PATIENT
  Age: 50 Year
  Sex: Male
  Weight: 260 kg

DRUGS (11)
  1. SEROQUEL [Suspect]
     Indication: SLEEP DISORDER THERAPY
     Route: 048
  2. SEROQUEL [Suspect]
     Route: 048
  3. SEROQUEL [Suspect]
     Route: 048
  4. SEROQUEL [Suspect]
     Route: 048
  5. CARDIZEM [Concomitant]
     Indication: CARDIAC DISORDER
  6. PRILOSEC [Concomitant]
     Indication: GASTROOESOPHAGEAL REFLUX DISEASE
  7. ASPIRIN [Concomitant]
     Indication: CARDIAC DISORDER
  8. PERCOCET [Concomitant]
     Indication: RHEUMATOID ARTHRITIS
  9. PERCOCET [Concomitant]
     Indication: TENDONITIS
  10. AMBIEN CR [Concomitant]
     Indication: SLEEP DISORDER THERAPY
  11. CLONIPINE [Concomitant]
     Indication: ANXIETY

REACTIONS (21)
  - AGGRESSION [None]
  - AGITATION [None]
  - ATRIAL FIBRILLATION [None]
  - CARDIAC DISORDER [None]
  - CONSTIPATION [None]
  - DIZZINESS [None]
  - EYE DISORDER [None]
  - FAMILY STRESS [None]
  - FATIGUE [None]
  - HALLUCINATION, AUDITORY [None]
  - HEADACHE [None]
  - IMPAIRED WORK ABILITY [None]
  - INSOMNIA [None]
  - OEDEMA PERIPHERAL [None]
  - PARANOIA [None]
  - PYREXIA [None]
  - SEXUAL DYSFUNCTION [None]
  - SUICIDAL IDEATION [None]
  - TACHYCARDIA [None]
  - TREMOR [None]
  - WEIGHT INCREASED [None]
